FAERS Safety Report 16483626 (Version 1)
Quarter: 2019Q2

REPORT INFORMATION
  Report Type: Spontaneous
  Country: DE (occurrence: DE)
  Receive Date: 20190627
  Receipt Date: 20190627
  Transmission Date: 20190711
  Serious: Yes (Other)
  Sender: FDA-Public Use
  Company Number: DE-TEVA-2019-DE-1067468

PATIENT
  Age: 8 Decade
  Sex: Male
  Weight: 73 kg

DRUGS (1)
  1. AMLODIPIN-CT 5 MG N TABLETTEN [Suspect]
     Active Substance: AMLODIPINE BESYLATE
     Dosage: 5 MILLIGRAM DAILY;
     Route: 048
     Dates: start: 20190603

REACTIONS (5)
  - Dizziness [Unknown]
  - Dyspnoea [Unknown]
  - Angina pectoris [Unknown]
  - Headache [Unknown]
  - Dyspnoea [Unknown]

NARRATIVE: CASE EVENT DATE: 20190603
